FAERS Safety Report 21661830 (Version 3)
Quarter: 2022Q4

REPORT INFORMATION
  Report Type: Report from Study
  Country: US (occurrence: US)
  Receive Date: 20221130
  Receipt Date: 20221202
  Transmission Date: 20230113
  Serious: No
  Sender: FDA-Public Use
  Company Number: US-GBT-017450

PATIENT
  Age: 12 Year
  Sex: Male

DRUGS (7)
  1. OXBRYTA [Suspect]
     Active Substance: VOXELOTOR
     Indication: Anaemia
     Dosage: ON AN UNKNOWN DATE  IN 2020, THE LAST OXBRYTA DOSE PRIOR TO EVENT ONSET WAS GIVEN.
     Dates: start: 20200818
  2. OXBRYTA [Suspect]
     Active Substance: VOXELOTOR
     Indication: Anaemia
  3. hydroxyurea 100 mg/ml oral solution for ambulatory [Concomitant]
     Indication: Sickle cell disease
     Route: 048
     Dates: start: 20190812, end: 20210215
  4. cholecalciferol-vitamin D3 50 mcg (2,000 unit) tablet [Concomitant]
     Indication: Vitamin D deficiency
     Dosage: 2000 UNITS
     Route: 048
     Dates: start: 20200306
  5. amoxicillin (Amoxil) [Concomitant]
     Indication: Sickle cell disease
     Route: 048
     Dates: start: 20120917
  6. folic acid (Folvite) [Concomitant]
     Indication: Sickle cell disease
     Route: 048
     Dates: start: 20140320
  7. HYDROcodone-acetaminophen (HYCET) 7.5-325 mg/15 mL oral solution [Concomitant]
     Indication: Sickle cell disease
     Dosage: EVERY 6 HOURS AS NECESSARY
     Route: 048
     Dates: start: 20190225, end: 20220318

REACTIONS (1)
  - Diarrhoea [Recovered/Resolved]

NARRATIVE: CASE EVENT DATE: 20200908
